FAERS Safety Report 10547598 (Version 1)
Quarter: 2014Q4

REPORT INFORMATION
  Report Type: Spontaneous
  Country: US (occurrence: None)
  Receive Date: 20141010
  Receipt Date: 20141010
  Transmission Date: 20150529
  Serious: Yes (Hospitalization)
  Sender: FDA-Public Use
  Company Number: 163-POMAL-14061994

PATIENT
  Age: 47 Year
  Sex: Female
  Weight: 144.7 kg

DRUGS (2)
  1. ASPIRIN (ACETYLSALICYLIC ACID) (UNKNOWN)?? [Concomitant]
  2. POMALYST [Suspect]
     Active Substance: POMALIDOMIDE
     Indication: PLASMA CELL MYELOMA
     Dosage: 4 MG,  1 IN 1 D,  PO  ?02/    / 2014   - PERMANENTLY DISCONTINUED
     Route: 048
     Dates: start: 201402

REACTIONS (2)
  - Deep vein thrombosis [None]
  - Pulmonary embolism [None]
